FAERS Safety Report 11938215 (Version 1)
Quarter: 2016Q1

REPORT INFORMATION
  Report Type: Other
  Country: US (occurrence: US)
  Receive Date: 20160122
  Receipt Date: 20160122
  Transmission Date: 20160526
  Serious: Yes (Hospitalization, Other)
  Sender: FDA-Public Use
  Company Number: US-HETERO LABS LTD-1046756

PATIENT
  Age: 34 Year
  Sex: Male

DRUGS (8)
  1. PROPOFOL. [Concomitant]
     Active Substance: PROPOFOL
  2. TYSABRI [Suspect]
     Active Substance: NATALIZUMAB
     Route: 042
  3. DALFAMPRIDINE [Suspect]
     Active Substance: DALFAMPRIDINE
  4. LORAZEPAM. [Concomitant]
     Active Substance: LORAZEPAM
  5. TEMAZEPAM. [Suspect]
     Active Substance: TEMAZEPAM
     Route: 065
  6. PHENYTOIN. [Concomitant]
     Active Substance: PHENYTOIN
  7. PHENOBARBITAL. [Concomitant]
     Active Substance: PHENOBARBITAL
  8. VALACYCLOVIR [Suspect]
     Active Substance: VALACYCLOVIR HYDROCHLORIDE
     Indication: MULTIPLE SCLEROSIS
     Route: 065

REACTIONS (3)
  - Generalised tonic-clonic seizure [Recovered/Resolved]
  - Encephalopathy [Recovered/Resolved]
  - Overdose [Recovered/Resolved]
